FAERS Safety Report 5029091-4 (Version None)
Quarter: 2006Q2

REPORT INFORMATION
  Report Type: 
  Country: None (occurrence: None)
  Receive Date: 20060613
  Receipt Date: 20060602
  Transmission Date: 20061013
  Serious: No
  Sender: FDA-Public Use
  Company Number: 2006-142780-NL

PATIENT
  Age: 67 Year
  Sex: Male

DRUGS (9)
  1. VECURONIUM BROMIDE [Suspect]
     Indication: INDUCTION AND MAINTENANCE OF ANAESTHESIA
     Dosage: INTRAVENOUS (NOS)
     Route: 042
     Dates: start: 20060125, end: 20060125
  2. PROPOFOL [Suspect]
     Indication: INDUCTION AND MAINTENANCE OF ANAESTHESIA
     Dosage: INTRAVENOUS (NOS)
     Route: 042
     Dates: start: 20060125, end: 20060125
  3. FENTANYL CITRATE [Suspect]
     Indication: INDUCTION AND MAINTENANCE OF ANAESTHESIA
     Dosage: INTRAVENOUS (NOS)
     Route: 042
     Dates: start: 20060125, end: 20060125
  4. BUPIVACAINE HYDROCHLORIDE [Suspect]
     Indication: MAINTENANCE OF ANAESTHESIA
     Dosage: EPIDURAL
     Route: 008
     Dates: start: 20060125, end: 20060125
  5. LIDOCAINE [Suspect]
     Indication: MAINTENANCE OF ANAESTHESIA
     Dosage: EPIDURAL
     Route: 008
     Dates: start: 20060125, end: 20060125
  6. LIDOCAINE [Suspect]
     Indication: MAINTENANCE OF ANAESTHESIA
     Dosage: EPIDURAL
     Route: 008
     Dates: start: 20060125, end: 20060126
  7. ROPIVACAINE [Suspect]
     Indication: POSTOPERATIVE ANALGESIA
     Dosage: EPIDURAL
     Route: 008
     Dates: start: 20060125, end: 20060126
  8. FLOMOXEF SODIUM [Suspect]
     Indication: INFECTION PROPHYLAXIS
     Dosage: INTRAVENOUS (NOS)
     Route: 042
     Dates: start: 20060125, end: 20060126
  9. HYDROXYETHYLCELLULOSE [Suspect]
     Indication: VOLUME BLOOD
     Dosage: INTRAVENOUS (NOS)
     Route: 042
     Dates: start: 20060125, end: 20060126

REACTIONS (2)
  - ANAPHYLACTOID SHOCK [None]
  - POST PROCEDURAL HAEMORRHAGE [None]
